FAERS Safety Report 5422280-6 (Version None)
Quarter: 2007Q3

REPORT INFORMATION
  Report Type: 
  Country: None (occurrence: None)
  Receive Date: 20070820
  Receipt Date: 20070820
  Transmission Date: 20080115
  Serious: Yes (Hospitalization)
  Sender: FDA-Public Use
  Company Number: None

PATIENT
  Age: 59 Year
  Sex: Male

DRUGS (8)
  1. AMIODARONE HCL [Suspect]
     Indication: ATRIAL FIBRILLATION
     Dosage: 200 MG DAILY PO
     Route: 048
  2. FERROUS SULFATE TAB [Concomitant]
  3. FLUTICASONE INHALER [Concomitant]
  4. LASIX [Concomitant]
  5. LANTUS [Concomitant]
  6. LEVOTHYROXINE SODIUM [Concomitant]
  7. LOPRESSOR [Concomitant]
  8. PROTONIX EC [Concomitant]

REACTIONS (6)
  - ATRIAL FIBRILLATION [None]
  - CARDIAC VALVE VEGETATION [None]
  - CARDIOMEGALY [None]
  - HYPOTHYROIDISM [None]
  - IATROGENIC INJURY [None]
  - MITRAL VALVE INCOMPETENCE [None]
